FAERS Safety Report 25171044 (Version 5)
Quarter: 2025Q2

REPORT INFORMATION
  Report Type: Report from Study
  Country: US (occurrence: US)
  Receive Date: 20250408
  Receipt Date: 20250630
  Transmission Date: 20250717
  Serious: Yes (Other)
  Sender: DECIPHERA PHARMACEUTICALS
  Company Number: US-DECIPHERA PHARMACEUTICALS LLC-2025US000260

PATIENT
  Age: 59 Year
  Sex: Female

DRUGS (2)
  1. ROMVIMZA [Suspect]
     Active Substance: VIMSELTINIB
     Indication: Connective tissue neoplasm
     Dosage: 30 MILLIGRAM, TWICE WEEKLY
     Route: 048
     Dates: start: 20250313, end: 202503
  2. ROMVIMZA [Suspect]
     Active Substance: VIMSELTINIB
     Indication: Soft tissue neoplasm
     Dosage: 30 MILLIGRAM, TWICE WEEKLY
     Route: 048
     Dates: start: 20250317

REACTIONS (14)
  - Neuropathy peripheral [Unknown]
  - Headache [Unknown]
  - Dizziness [Unknown]
  - Nausea [Unknown]
  - Swelling [Unknown]
  - Increased appetite [Unknown]
  - Illness [Unknown]
  - Constipation [Unknown]
  - Weight increased [Unknown]
  - Glossodynia [Unknown]
  - Swelling face [Unknown]
  - Periorbital swelling [Unknown]
  - Pruritus [Unknown]
  - Fatigue [Unknown]

NARRATIVE: CASE EVENT DATE: 20250101
